FAERS Safety Report 4325684-8 (Version None)
Quarter: 2004Q1

REPORT INFORMATION
  Report Type: 
  Country: None (occurrence: None)
  Receive Date: 20040324
  Receipt Date: 20040310
  Transmission Date: 20041129
  Serious: Yes (Hospitalization)
  Sender: FDA-Public Use
  Company Number: USA040259765

PATIENT
  Age: 81 Year
  Sex: Female
  Weight: 68 kg

DRUGS (6)
  1. SYMBYAX [Suspect]
     Indication: BIPOLAR DISORDER
     Dates: start: 20040209
  2. SYMBYAX [Suspect]
     Indication: DEPRESSION
     Dates: start: 20040209
  3. PROCARDIA [Concomitant]
  4. ANTACAL (AMLODIPINE BESILATE) [Concomitant]
  5. LIPITOR [Concomitant]
  6. LITHIUM [Concomitant]

REACTIONS (7)
  - ABDOMINAL PAIN UPPER [None]
  - HAEMATEMESIS [None]
  - HAEMATOCHEZIA [None]
  - HAEMORRHAGE [None]
  - INCOHERENT [None]
  - PAIN [None]
  - VOMITING [None]
